FAERS Safety Report 5153020-6 (Version None)
Quarter: 2006Q4

REPORT INFORMATION
  Report Type: 
  Country: None (occurrence: None)
  Receive Date: 20061117
  Receipt Date: 20061108
  Transmission Date: 20070319
  Serious: Yes (Hospitalization)
  Sender: FDA-Public Use
  Company Number: HR-NOVOPROD-258553

PATIENT
  Age: 14 Year
  Sex: Male
  Weight: 63 kg

DRUGS (1)
  1. LEVEMIR [Suspect]
     Dosage: 19 IU, QD
     Route: 058
     Dates: start: 20060818

REACTIONS (1)
  - GASTROENTERITIS [None]
